FAERS Safety Report 23989186 (Version 1)
Quarter: 2024Q2

REPORT INFORMATION
  Report Type: Spontaneous
  Country: US (occurrence: US)
  Receive Date: 20240619
  Receipt Date: 20240619
  Transmission Date: 20240716
  Serious: No
  Sender: FDA-Public Use
  Company Number: US-002147023-NVSC2024US127400

PATIENT
  Sex: Female
  Weight: 113 kg

DRUGS (1)
  1. FABHALTA [Suspect]
     Active Substance: IPTACOPAN HYDROCHLORIDE
     Indication: Paroxysmal nocturnal haemoglobinuria
     Dosage: 200 MG, BID (START DATE UNKNOWN - START DATE LISTED ABOVE IS ONCO360 FIRST DISPENSE)
     Route: 048
     Dates: start: 20240315, end: 20240614

REACTIONS (1)
  - Maternal exposure during pregnancy [Recovering/Resolving]
